FAERS Safety Report 23055528 (Version 1)
Quarter: 2023Q4

REPORT INFORMATION
  Report Type: Spontaneous
  Country: US (occurrence: US)
  Receive Date: 20231011
  Receipt Date: 20231011
  Transmission Date: 20240110
  Serious: Yes (Hospitalization, Other)
  Sender: FDA-Public Use
  Company Number: US-SA-SAC20231005001442

PATIENT
  Age: 2 Year

DRUGS (1)
  1. LUMIZYME [Suspect]
     Active Substance: ALGLUCOSIDASE ALFA
     Indication: Glycogen storage disease type II
     Dosage: 250 MG (20MG/KG), QOW
     Route: 065

REACTIONS (8)
  - Oxygen saturation decreased [Unknown]
  - Pneumonia [Recovering/Resolving]
  - Respiratory failure [Unknown]
  - Human rhinovirus test positive [Recovering/Resolving]
  - Enterovirus test positive [Recovering/Resolving]
  - Platelet count increased [Unknown]
  - Hyperhidrosis [Unknown]
  - Pallor [Unknown]

NARRATIVE: CASE EVENT DATE: 20230901
